FAERS Safety Report 8859921 (Version 2)
Quarter: 2012Q4

REPORT INFORMATION
  Report Type: 
  Country: CA (occurrence: CA)
  Receive Date: 20121025
  Receipt Date: 20121210
  Transmission Date: 20130627
  Serious: Yes (Hospitalization, Other)
  Sender: FDA-Public Use
  Company Number: CA-ELI_LILLY_AND_COMPANY-CA201210004429

PATIENT
  Age: 97 Year
  Sex: Female

DRUGS (6)
  1. FORTEO [Suspect]
     Indication: OSTEOPOROSIS
     Dosage: 20 ug, qd
     Route: 058
     Dates: start: 20110722
  2. OMEPRAZOLE [Concomitant]
  3. ZOPICLONE [Concomitant]
  4. TYLENOL                                 /SCH/ [Concomitant]
  5. ASA [Concomitant]
  6. SENNOSIDE [Concomitant]

REACTIONS (2)
  - Device breakage [Unknown]
  - Ligament sprain [Unknown]
